FAERS Safety Report 16700020 (Version 3)
Quarter: 2019Q4

REPORT INFORMATION
  Report Type: Spontaneous
  Country: BE (occurrence: BE)
  Receive Date: 20190813
  Receipt Date: 20191001
  Transmission Date: 20200122
  Serious: Yes (Hospitalization)
  Sender: FDA-Public Use
  Company Number: BE-BAXTER-2019BAX015586

PATIENT
  Age: 1 Month
  Sex: Male
  Weight: 4.2 kg

DRUGS (1)
  1. PLASMA-LYTE 148 AND DEXTROSE [Suspect]
     Active Substance: DEXTROSE MONOHYDRATE\MAGNESIUM CHLORIDE\POTASSIUM CHLORIDE\SODIUM ACETATE\SODIUM CHLORIDE\SODIUM GLUCONATE
     Indication: FASTING
     Route: 042
     Dates: start: 20190607, end: 20190608

REACTIONS (2)
  - Administration site extravasation [Recovered/Resolved with Sequelae]
  - Burns second degree [Recovered/Resolved with Sequelae]

NARRATIVE: CASE EVENT DATE: 20190607
